FAERS Safety Report 5830380-1 (Version None)
Quarter: 2008Q3

REPORT INFORMATION
  Report Type: 
  Country: None (occurrence: None)
  Receive Date: 20080801
  Receipt Date: 20080723
  Transmission Date: 20090109
  Serious: Yes (Other)
  Sender: FDA-Public Use
  Company Number: JP-JNJFOC-20080705977

PATIENT
  Sex: Male

DRUGS (5)
  1. LEVOFLOXACIN [Suspect]
     Indication: UPPER RESPIRATORY TRACT INFLAMMATION
     Route: 048
  2. LEVOFLOXACIN [Suspect]
     Indication: ACUTE SINUSITIS
     Route: 048
  3. CLARITIN [Concomitant]
     Indication: RHINITIS ALLERGIC
     Route: 048
  4. KAKKONTOUKASENKYUUSHINI [Concomitant]
     Route: 048
  5. KAKKONTOUKASENKYUUSHINI [Concomitant]
     Indication: ACUTE SINUSITIS
     Route: 048

REACTIONS (4)
  - CHEILITIS [None]
  - OROPHARYNGEAL SWELLING [None]
  - PHARYNGEAL ERYTHEMA [None]
  - RASH [None]
